FAERS Safety Report 4850949-0 (Version None)
Quarter: 2005Q4

REPORT INFORMATION
  Report Type: 
  Country: None (occurrence: None)
  Receive Date: 20051209
  Receipt Date: 20051209
  Transmission Date: 20060501
  Serious: Yes (Other)
  Sender: FDA-Public Use
  Company Number: None

PATIENT
  Age: 52 Year
  Sex: Male
  Weight: 87.9 kg

DRUGS (1)
  1. CHLORDIAZEPOXIDE 25MG HYDROCHLORIDE CAP [Suspect]
     Indication: ANXIETY
     Dosage: 25MG PO TID
     Route: 048
     Dates: start: 20050802, end: 20050811

REACTIONS (1)
  - HYPERSOMNIA [None]
